FAERS Safety Report 16250233 (Version 5)
Quarter: 2019Q4

REPORT INFORMATION
  Report Type: Report from Study
  Country: US (occurrence: US)
  Receive Date: 20190429
  Receipt Date: 20191127
  Transmission Date: 20200122
  Serious: Yes (Death, Hospitalization)
  Sender: FDA-Public Use
  Company Number: US-AMGEN-USACT2019065967

PATIENT
  Age: 57 Year
  Sex: Male
  Weight: 103.5 kg

DRUGS (4)
  1. NIVOLUMAB [Suspect]
     Active Substance: NIVOLUMAB
     Indication: B PRECURSOR TYPE ACUTE LEUKAEMIA
     Dosage: 240 MILLIGRAM, OVER 60 MINUTES ON DAY 11 AND THEN EVERY TWO WEEKS
     Route: 042
     Dates: start: 20190127, end: 20190208
  2. BLINATUMOMAB [Suspect]
     Active Substance: BLINATUMOMAB
     Indication: B PRECURSOR TYPE ACUTE LEUKAEMIA
     Dosage: 9 MICROGRAM, QD
     Route: 042
     Dates: start: 20190117
  3. BLINATUMOMAB [Suspect]
     Active Substance: BLINATUMOMAB
     Dosage: 28 MICROGRAM, QD
     Route: 042
     Dates: end: 20190213
  4. IPILIMUMAB [Suspect]
     Active Substance: IPILIMUMAB
     Indication: B PRECURSOR TYPE ACUTE LEUKAEMIA
     Dosage: 1 MILLIGRAM/KILOGRAM, OVER 90 MINUTES ON DAY 11 AND THEN EVERY 6 WEEKS
     Route: 042
     Dates: start: 20190127, end: 20190127

REACTIONS (1)
  - Pneumonitis [Fatal]

NARRATIVE: CASE EVENT DATE: 20190413
